FAERS Safety Report 5572297-6 (Version None)
Quarter: 2007Q4

REPORT INFORMATION
  Report Type: 
  Country: None (occurrence: None)
  Receive Date: 20071221
  Receipt Date: 20071212
  Transmission Date: 20080405
  Serious: Yes (Hospitalization)
  Sender: FDA-Public Use
  Company Number: US-PFIZER INC-2007105037

PATIENT

DRUGS (3)
  1. NEURONTIN [Suspect]
  2. ANTIBIOTICS [Suspect]
  3. ALL OTHER THERAPEUTIC PRODUCTS [Suspect]

REACTIONS (4)
  - IRRITABILITY [None]
  - PSYCHOMOTOR HYPERACTIVITY [None]
  - RESTLESSNESS [None]
  - TREMOR [None]
